FAERS Safety Report 22151095 (Version 2)
Quarter: 2023Q1

REPORT INFORMATION
  Report Type: Spontaneous
  Country: US (occurrence: US)
  Receive Date: 20230329
  Receipt Date: 20230331
  Transmission Date: 20230418
  Serious: No
  Sender: FDA-Public Use
  Company Number: US-SANOFI-01549317

PATIENT
  Sex: Female

DRUGS (1)
  1. LANTUS [Suspect]
     Active Substance: INSULIN GLARGINE
     Indication: Diabetes mellitus
     Dosage: 34 U, QD (HS)

REACTIONS (4)
  - Injection site pain [Unknown]
  - Needle issue [Unknown]
  - Hypoacusis [Unknown]
  - Incorrect product administration duration [Unknown]
